FAERS Safety Report 20628528 (Version 1)
Quarter: 2022Q1

REPORT INFORMATION
  Report Type: Spontaneous
  Country: HR (occurrence: HR)
  Receive Date: 20220323
  Receipt Date: 20220323
  Transmission Date: 20220424
  Serious: Yes (Hospitalization, Other)
  Sender: FDA-Public Use
  Company Number: HR-PFIZER INC-2020476687

PATIENT
  Sex: Male

DRUGS (3)
  1. LORLATINIB [Suspect]
     Active Substance: LORLATINIB
     Indication: Lung cancer metastatic
     Dosage: UNK
     Dates: start: 202010
  2. LORLATINIB [Suspect]
     Active Substance: LORLATINIB
     Dosage: 75 MG, DAILY
     Dates: start: 202101
  3. LORLATINIB [Suspect]
     Active Substance: LORLATINIB
     Dosage: 50 MG, DAILY
     Route: 048

REACTIONS (13)
  - COVID-19 [Recovered/Resolved]
  - Vomiting [Recovered/Resolved]
  - Diarrhoea [Recovered/Resolved]
  - Oliguria [Recovered/Resolved]
  - Hyperkalaemia [Recovered/Resolved]
  - Pericardial effusion [Unknown]
  - Pneumonitis [Recovered/Resolved]
  - Low density lipoprotein increased [Unknown]
  - Blood creatinine increased [Not Recovered/Not Resolved]
  - Blood cholesterol increased [Unknown]
  - Oedema peripheral [Recovered/Resolved]
  - Ejection fraction decreased [Unknown]
  - Proteinuria [Unknown]

NARRATIVE: CASE EVENT DATE: 20210101
